FAERS Safety Report 10504536 (Version 1)
Quarter: 2014Q4

REPORT INFORMATION
  Report Type: Spontaneous
  Country: US (occurrence: None)
  Receive Date: 20141007
  Receipt Date: 20141007
  Transmission Date: 20150528
  Serious: No
  Sender: FDA-Public Use
  Company Number: None

PATIENT
  Age: 59 Year
  Sex: Female
  Weight: 78.02 kg

DRUGS (2)
  1. TROSPIUM [Suspect]
     Active Substance: TROSPIUM
     Indication: HYPERTONIC BLADDER
     Route: 048
  2. OXYBUTYNIN CHLORIDE. [Suspect]
     Active Substance: OXYBUTYNIN CHLORIDE
     Indication: HYPERTONIC BLADDER
     Route: 048

REACTIONS (1)
  - Neuralgia [None]

NARRATIVE: CASE EVENT DATE: 20140923
